FAERS Safety Report 19071963 (Version 1)
Quarter: 2021Q1

REPORT INFORMATION
  Report Type: Other
  Country: US (occurrence: US)
  Receive Date: 20210330
  Receipt Date: 20210330
  Transmission Date: 20210420
  Serious: Yes (Other)
  Sender: FDA-Public Use
  Company Number: US-APOTEX-2021AP007128

PATIENT

DRUGS (2)
  1. ENOXAPARIN SODIUM INJECTION [Suspect]
     Active Substance: ENOXAPARIN SODIUM
     Dosage: UNK
     Route: 065
  2. ENOXAPARIN SODIUM INJECTION [Suspect]
     Active Substance: ENOXAPARIN SODIUM
     Indication: TONSILLECTOMY
     Dosage: UNK
     Route: 065
     Dates: start: 202010

REACTIONS (4)
  - Haemorrhage [Unknown]
  - Injection site bruising [Unknown]
  - Injection site discolouration [Unknown]
  - Recalled product administered [Unknown]

NARRATIVE: CASE EVENT DATE: 202010
